FAERS Safety Report 15694766 (Version 1)
Quarter: 2018Q4

REPORT INFORMATION
  Report Type: Spontaneous
  Country: PL (occurrence: PL)
  Receive Date: 20181206
  Receipt Date: 20181206
  Transmission Date: 20190205
  Serious: Yes (Death, Other)
  Sender: FDA-Public Use
  Company Number: PL-PFIZER INC-2018499179

PATIENT
  Sex: Male

DRUGS (6)
  1. FLUDARABINE PHOSPHATE. [Suspect]
     Active Substance: FLUDARABINE PHOSPHATE
     Indication: PROPHYLAXIS
  2. BUSILVEX [Suspect]
     Active Substance: BUSULFAN
     Indication: PROPHYLAXIS
     Dosage: 4 ? 4 ? 1.0 MG/KG
     Route: 041
  3. SPORANOX [Concomitant]
     Active Substance: ITRACONAZOLE
     Indication: PROPHYLAXIS
  4. VFEND [Concomitant]
     Active Substance: VORICONAZOLE
     Indication: PROPHYLAXIS
  5. SOLU-MEDROL [Suspect]
     Active Substance: METHYLPREDNISOLONE SODIUM SUCCINATE
  6. CAMPATH [Suspect]
     Active Substance: ALEMTUZUMAB
     Indication: PROPHYLAXIS
     Dosage: 3 X 0.2 MG/KG

REACTIONS (4)
  - Paronychia [Fatal]
  - Aspergillus infection [Fatal]
  - Mucosal inflammation [Unknown]
  - Cardiac disorder [Unknown]
